FAERS Safety Report 6928002-1 (Version None)
Quarter: 2010Q3

REPORT INFORMATION
  Report Type: 
  Country: None (occurrence: None)
  Receive Date: 20100817
  Receipt Date: 20100812
  Transmission Date: 20110219
  Serious: Yes (Hospitalization, Other)
  Sender: FDA-Public Use
  Company Number: BE-BRISTOL-MYERS SQUIBB COMPANY-15233794

PATIENT
  Age: 13 Year
  Sex: Male

DRUGS (10)
  1. CYCLOPHOSPHAMIDE [Suspect]
     Indication: ACUTE LYMPHOCYTIC LEUKAEMIA
     Dosage: ON DAY 1
     Route: 042
     Dates: start: 20100714
  2. VINCRISTINE SULFATE [Suspect]
     Indication: ACUTE LYMPHOCYTIC LEUKAEMIA
  3. DOXORUBICIN HCL [Suspect]
     Indication: ACUTE LYMPHOCYTIC LEUKAEMIA
  4. BACTRIM [Suspect]
     Route: 048
  5. ASPARAGINASE [Suspect]
     Indication: ACUTE LYMPHOCYTIC LEUKAEMIA
  6. OMEPRAZOLE [Suspect]
     Route: 048
     Dates: start: 20100620
  7. THIOGUANINE [Suspect]
     Indication: ACUTE LYMPHOCYTIC LEUKAEMIA
     Dosage: DAYS 1-14
     Dates: start: 20100714
  8. CYTARABINE [Suspect]
     Dosage: IV CYTARABINE 75 MG/M2 ON DAYS 3-6 AND DAYS 10-13; TRIPLE INTRATHECAL THERAPY
     Route: 037
     Dates: start: 20100714
  9. METHOTREXATE [Suspect]
     Route: 037
  10. ONDANSETRON [Suspect]

REACTIONS (1)
  - HEMIPARESIS [None]
